FAERS Safety Report 4911064-0 (Version None)
Quarter: 2006Q1

REPORT INFORMATION
  Report Type: 
  Country: None (occurrence: None)
  Receive Date: 20060214
  Receipt Date: 20060210
  Transmission Date: 20060701
  Serious: Yes (Hospitalization)
  Sender: FDA-Public Use
  Company Number: NL-SANOFI-SYNTHELABO-F01200600387

PATIENT
  Sex: Female

DRUGS (3)
  1. OXALIPLATIN [Suspect]
     Indication: COLORECTAL CANCER
     Route: 041
     Dates: start: 20060201, end: 20060201
  2. CAPECITABINE [Suspect]
     Dosage: 1800 MG DAYS 1-14 (1250 MG/M2 AFTER CYCLE 6)
     Route: 048
     Dates: start: 20060201
  3. BEVACIZUMAB [Suspect]
     Route: 041
     Dates: start: 20060201, end: 20060201

REACTIONS (4)
  - DIARRHOEA [None]
  - HAEMORRHAGE [None]
  - NAUSEA [None]
  - VOMITING [None]
